FAERS Safety Report 7717236-4 (Version None)
Quarter: 2011Q3

REPORT INFORMATION
  Report Type: 
  Country: None (occurrence: None)
  Receive Date: 20110826
  Receipt Date: 20110826
  Transmission Date: 20111222
  Serious: Yes (Hospitalization)
  Sender: FDA-Public Use
  Company Number: None

PATIENT
  Sex: Male
  Weight: 80.5 kg

DRUGS (3)
  1. BEVACIZUMAB (RHUMAB VEGF) [Suspect]
     Dosage: 1208 MG
  2. TAXOL [Suspect]
     Dosage: 386 MG
  3. CARBOPLATIN [Suspect]
     Dosage: 869 MG

REACTIONS (7)
  - LUNG NEOPLASM MALIGNANT [None]
  - PNEUMONIA [None]
  - NEUTROPENIA [None]
  - ILEUS [None]
  - PULMONARY EMBOLISM [None]
  - SMALL INTESTINAL OBSTRUCTION [None]
  - RESPIRATORY FAILURE [None]
